FAERS Safety Report 17895120 (Version 5)
Quarter: 2020Q4

REPORT INFORMATION
  Report Type: Spontaneous
  Country: US (occurrence: US)
  Receive Date: 20200615
  Receipt Date: 20201204
  Transmission Date: 20210113
  Serious: Yes (Other)
  Sender: FDA-Public Use
  Company Number: US-PFIZER INC-2020230912

PATIENT
  Age: 71 Year
  Sex: Female

DRUGS (3)
  1. XELJANZ [Suspect]
     Active Substance: TOFACITINIB CITRATE
     Dosage: 5 MG, 2X/DAY (STRENGTH: 5MG)
     Route: 048
     Dates: start: 20200722
  2. XELJANZ [Suspect]
     Active Substance: TOFACITINIB CITRATE
     Indication: COLITIS ULCERATIVE
     Dosage: 10 MG, 2X/DAY
     Route: 048
     Dates: start: 20200505, end: 202007
  3. UCERIS [Concomitant]
     Active Substance: BUDESONIDE
     Dosage: UNK
     Dates: start: 202009

REACTIONS (2)
  - Condition aggravated [Recovering/Resolving]
  - Gastrointestinal bacterial overgrowth [Recovered/Resolved]

NARRATIVE: CASE EVENT DATE: 2020
